FAERS Safety Report 19757743 (Version 1)
Quarter: 2021Q3

REPORT INFORMATION
  Report Type: Other
  Country: US (occurrence: US)
  Receive Date: 20210828
  Receipt Date: 20210828
  Transmission Date: 20211014
  Serious: Yes (Hospitalization)
  Sender: FDA-Public Use
  Company Number: US-ROCHE-2896854

PATIENT
  Age: 47 Year
  Sex: Female

DRUGS (1)
  1. OCREVUS [Suspect]
     Active Substance: OCRELIZUMAB
     Indication: RELAPSING MULTIPLE SCLEROSIS
     Dosage: (PRESCRIBED AS 300 MG ON DAY 1 AND DAY 15 AND 600 MG ONCE IN 6 MONTHS)
     Route: 042
     Dates: start: 20190219

REACTIONS (2)
  - COVID-19 [Unknown]
  - Pulmonary thrombosis [Unknown]

NARRATIVE: CASE EVENT DATE: 202104
